FAERS Safety Report 8913697 (Version 1)
Quarter: 2012Q4

REPORT INFORMATION
  Report Type: 
  Country: US (occurrence: US)
  Receive Date: 20121119
  Receipt Date: 20121119
  Transmission Date: 20130627
  Serious: Yes (Other)
  Sender: FDA-Public Use
  Company Number: US-JNJFOC-20121103096

PATIENT
  Sex: Female
  Weight: 101.15 kg

DRUGS (7)
  1. SANDOZ FENTANYL TRANSDERMAL SYSTEM [Suspect]
     Indication: OSTEOARTHRITIS
     Dosage: NDC 0781-7240-55
     Route: 062
     Dates: start: 201209, end: 201210
  2. SANDOZ FENTANYL TRANSDERMAL SYSTEM [Suspect]
     Indication: OSTEOARTHRITIS
     Route: 062
     Dates: start: 201210
  3. SANDOZ FENTANYL TRANSDERMAL SYSTEM [Suspect]
     Indication: SCOLIOSIS
     Dosage: NDC 0781-7240-55
     Route: 062
     Dates: start: 201209, end: 201210
  4. SANDOZ FENTANYL TRANSDERMAL SYSTEM [Suspect]
     Indication: SCOLIOSIS
     Route: 062
     Dates: start: 201210
  5. ANTIDIABETIC MEDICATION [Concomitant]
     Indication: DIABETES MELLITUS
     Route: 058
  6. JANUVIA [Concomitant]
     Indication: DIABETES MELLITUS
     Route: 048
  7. CARDIAC MEDICATION [Concomitant]
     Indication: CARDIAC FAILURE CONGESTIVE
     Route: 048

REACTIONS (9)
  - Dyspnoea [Recovered/Resolved]
  - Pyrexia [Recovered/Resolved]
  - Treatment noncompliance [Recovered/Resolved]
  - Diarrhoea [Recovered/Resolved]
  - Feeling abnormal [Recovered/Resolved]
  - Heart rate increased [Recovered/Resolved]
  - Malaise [Recovering/Resolving]
  - Vomiting [Recovered/Resolved]
  - Hyperhidrosis [Recovered/Resolved]
